FAERS Safety Report 21738156 (Version 3)
Quarter: 2024Q1

REPORT INFORMATION
  Report Type: Spontaneous
  Country: DE (occurrence: DE)
  Receive Date: 20221216
  Receipt Date: 20240203
  Transmission Date: 20240410
  Serious: Yes (Hospitalization)
  Sender: FDA-Public Use
  Company Number: DE-GRUNENTHAL-2022-106812

PATIENT
  Sex: Male

DRUGS (1)
  1. TRAMADOL HYDROCHLORIDE [Suspect]
     Active Substance: TRAMADOL HYDROCHLORIDE
     Indication: Product used for unknown indication
     Dosage: 100 MILLIGRAM, 2/DAY
     Route: 065

REACTIONS (5)
  - Nightmare [Not Recovered/Not Resolved]
  - Physical disability [Not Recovered/Not Resolved]
  - Dysuria [Not Recovered/Not Resolved]
  - Phimosis [Not Recovered/Not Resolved]
  - Gonorrhoea [Not Recovered/Not Resolved]
